FAERS Safety Report 6342035-8 (Version None)
Quarter: 2009Q3

REPORT INFORMATION
  Report Type: 
  Country: None (occurrence: None)
  Receive Date: 20090904
  Receipt Date: 20090825
  Transmission Date: 20100115
  Serious: Yes (Life-Threatening)
  Sender: FDA-Public Use
  Company Number: NL-ABBOTT-09P-114-0585302-00

PATIENT
  Sex: Male
  Weight: 84 kg

DRUGS (7)
  1. AKINETON [Suspect]
     Indication: DRUG USE FOR UNKNOWN INDICATION
     Dosage: 15MG AND 25MG WAS BROUGHT TO 10MG FOR LAST TIME
     Dates: start: 20060101
  2. AKINETON [Suspect]
     Dosage: TIMES PER 1 DOSAGE FORM
  3. ARTANE [Suspect]
     Indication: DRUG USE FOR UNKNOWN INDICATION
     Dosage: 15MG AND 25MG WAS BROUGHT TO 10MG FOR THE LAST TIME
     Dates: start: 20060101
  4. ARTANE [Suspect]
     Dosage: TIMES PER 1 DOSAGE FORM
  5. FLUANXOL [Suspect]
     Indication: DRUG USE FOR UNKNOWN INDICATION
     Dosage: 15MG AND 25MG WAS BROUGHT TO 10MG FOR LAST TIME
     Dates: start: 20060101
  6. FLUANXOL [Suspect]
     Dosage: TIMES PER 1 DOSAGE FORM
  7. RISPERIDON [Suspect]
     Indication: DRUG USE FOR UNKNOWN INDICATION
     Dosage: TIMES PER 1 DOSAGE FORM

REACTIONS (12)
  - ASTHENIA [None]
  - COLON INJURY [None]
  - DYSPNOEA [None]
  - GASTROINTESTINAL DISORDER [None]
  - GASTROINTESTINAL INJURY [None]
  - ILL-DEFINED DISORDER [None]
  - MUSCLE DISORDER [None]
  - NAUSEA [None]
  - PHARYNGEAL DISORDER [None]
  - TRAUMATIC LUNG INJURY [None]
  - VEIN DISORDER [None]
  - VISUAL IMPAIRMENT [None]
